FAERS Safety Report 5309112-1 (Version None)
Quarter: 2007Q2

REPORT INFORMATION
  Report Type: 
  Country: None (occurrence: None)
  Receive Date: 20070413
  Receipt Date: 20070402
  Transmission Date: 20071010
  Serious: Yes (Hospitalization)
  Sender: FDA-Public Use
  Company Number: THYM-11383

PATIENT
  Age: 57 Year
  Sex: Male
  Weight: 68.1 kg

DRUGS (16)
  1. THYMOGLOBULIN [Suspect]
     Indication: RENAL TRANSPLANT
     Dates: start: 20060203, end: 20060208
  2. PROGRAF [Concomitant]
  3. CELLCEPT [Concomitant]
  4. PREDNISONE TAB [Concomitant]
  5. VALCYTE [Concomitant]
  6. NYSTATIN [Concomitant]
  7. BACTRIM [Concomitant]
  8. LOPRESSOR [Concomitant]
  9. SODIUM BICARBONATE [Concomitant]
  10. ZANTAC [Concomitant]
  11. FOSAMAX [Concomitant]
  12. SENOKOT [Concomitant]
  13. VICODIN [Concomitant]
  14. PLAVIX [Concomitant]
  15. ASPIRIN [Concomitant]
  16. MULTI-VITAMIN [Concomitant]

REACTIONS (5)
  - JOINT SWELLING [None]
  - MYALGIA [None]
  - PYREXIA [None]
  - RASH [None]
  - SERUM SICKNESS [None]
